FAERS Safety Report 7400770-4 (Version None)
Quarter: 2011Q2

REPORT INFORMATION
  Report Type: 
  Country: None (occurrence: None)
  Receive Date: 20110407
  Receipt Date: 20110121
  Transmission Date: 20111010
  Serious: Yes (Other)
  Sender: FDA-Public Use
  Company Number: B0695733A

PATIENT
  Sex: Female

DRUGS (5)
  1. PAXIL [Suspect]
     Indication: DEPRESSION
     Dosage: 40MG PER DAY
     Route: 048
     Dates: start: 20081004
  2. DEPAS [Concomitant]
     Indication: ANXIETY
     Dosage: .5MG PER DAY
     Route: 048
     Dates: start: 20080625
  3. SOLANAX [Concomitant]
     Route: 048
  4. MYSLEE [Concomitant]
     Route: 048
  5. LORAMET [Concomitant]
     Indication: INSOMNIA
     Dosage: 1MG PER DAY
     Route: 048
     Dates: start: 20101118

REACTIONS (4)
  - STARING [None]
  - LOSS OF CONSCIOUSNESS [None]
  - FOAMING AT MOUTH [None]
  - GRAND MAL CONVULSION [None]
